FAERS Safety Report 11089665 (Version 1)
Quarter: 2015Q2

REPORT INFORMATION
  Report Type: Spontaneous
  Country: US (occurrence: US)
  Receive Date: 20150505
  Receipt Date: 20150505
  Transmission Date: 20150821
  Serious: No
  Sender: FDA-Public Use
  Company Number: US-BAYER-2015-160845

PATIENT
  Age: 37 Year
  Sex: Female

DRUGS (3)
  1. MIRENA [Suspect]
     Active Substance: LEVONORGESTREL
     Indication: CONTRACEPTION
     Dosage: 20 MCG/24HR, CONT
     Route: 015
     Dates: start: 201402
  2. AMANTADINE [Suspect]
     Active Substance: AMANTADINE
     Indication: FATIGUE
     Dosage: UNK
     Route: 048
     Dates: start: 2011, end: 20141218
  3. BETASERON [Suspect]
     Active Substance: INTERFERON BETA-1B
     Indication: MULTIPLE SCLEROSIS
     Dosage: UNK
     Dates: start: 2011

REACTIONS (7)
  - Pruritus [None]
  - Stomatitis [Recovered/Resolved]
  - Abdominal distension [None]
  - Night sweats [None]
  - Abdominal tenderness [None]
  - Oral pruritus [None]
  - Acne [None]
